FAERS Safety Report 6052866-X (Version None)
Quarter: 2009Q1

REPORT INFORMATION
  Report Type: 
  Country: None (occurrence: None)
  Receive Date: 20090122
  Receipt Date: 20090109
  Transmission Date: 20090719
  Serious: Yes (Death, Other)
  Sender: FDA-Public Use
  Company Number: A-US2005-08499

PATIENT
  Age: 59 Year
  Sex: Female

DRUGS (8)
  1. TRACLEER [Suspect]
     Indication: PULMONARY HYPERTENSION
     Dosage: 125 MG, BID, ORAL
     Route: 048
     Dates: start: 20041001
  2. WARFARIN SODIUM [Concomitant]
  3. LEXAPRO [Concomitant]
  4. SYNTHROID [Concomitant]
  5. NEURONTIN [Concomitant]
  6. XANAX [Concomitant]
  7. NEXIUM [Concomitant]
  8. AMERGE [Concomitant]

REACTIONS (2)
  - ANAEMIA [None]
  - OFF LABEL USE [None]
